FAERS Safety Report 5612552-4 (Version None)
Quarter: 2008Q1

REPORT INFORMATION
  Report Type: 
  Country: None (occurrence: None)
  Receive Date: 20080204
  Receipt Date: 20080124
  Transmission Date: 20080703
  Serious: Yes (Other)
  Sender: FDA-Public Use
  Company Number: US-JNJFOC-20080106287

PATIENT
  Age: 67 Year
  Sex: Male
  Weight: 72.58 kg

DRUGS (1)
  1. MYLANTA MAXIMUM STRENGTH ORIGINAL [Suspect]
     Indication: DYSPEPSIA
     Dosage: 10-20 ML AS NEEDED
     Route: 048

REACTIONS (2)
  - DYSPEPSIA [None]
  - MEDICATION TAMPERING [None]
